FAERS Safety Report 12262989 (Version 7)
Quarter: 2018Q4

REPORT INFORMATION
  Report Type: Spontaneous
  Country: US (occurrence: US)
  Receive Date: 20160413
  Receipt Date: 20181107
  Transmission Date: 20190204
  Serious: No
  Sender: FDA-Public Use
  Company Number: US-PFIZER INC-2016167747

PATIENT
  Age: 51 Year
  Sex: Female

DRUGS (3)
  1. LYRICA [Suspect]
     Active Substance: PREGABALIN
     Indication: FIBROMYALGIA
     Dosage: UNK
     Route: 048
  2. LYRICA [Suspect]
     Active Substance: PREGABALIN
     Indication: PERINEAL PAIN
  3. LYRICA [Suspect]
     Active Substance: PREGABALIN
     Indication: PELVIC PAIN

REACTIONS (4)
  - Fall [Recovered/Resolved]
  - Malaise [Unknown]
  - Dissociation [Unknown]
  - Dysuria [Unknown]

NARRATIVE: CASE EVENT DATE: 201604
